FAERS Safety Report 5288081-7 (Version None)
Quarter: 2007Q2

REPORT INFORMATION
  Report Type: 
  Country: None (occurrence: None)
  Receive Date: 20070402
  Receipt Date: 20070402
  Transmission Date: 20071010
  Serious: Yes (Hospitalization)
  Sender: FDA-Public Use
  Company Number: None

PATIENT
  Age: 61 Year
  Sex: Male
  Weight: 67.1324 kg

DRUGS (1)
  1. COREG [Suspect]
     Indication: CARDIAC FAILURE CONGESTIVE
     Dosage: 18.75 TWICE PO DAILY
     Route: 048
     Dates: start: 20060929, end: 20070331

REACTIONS (13)
  - ABDOMINAL DISTENSION [None]
  - ARTHRALGIA [None]
  - BLOOD PRESSURE DECREASED [None]
  - DEHYDRATION [None]
  - DEPRESSED LEVEL OF CONSCIOUSNESS [None]
  - DIARRHOEA [None]
  - EYE ROLLING [None]
  - FALL [None]
  - FATIGUE [None]
  - FLATULENCE [None]
  - MOVEMENT DISORDER [None]
  - PERIPHERAL COLDNESS [None]
  - VOMITING [None]
